FAERS Safety Report 7714708-3 (Version None)
Quarter: 2011Q3

REPORT INFORMATION
  Report Type: 
  Country: None (occurrence: None)
  Receive Date: 20110822
  Receipt Date: 20110805
  Transmission Date: 20111222
  Serious: Yes (Other)
  Sender: FDA-Public Use
  Company Number: 2011MA011398

PATIENT
  Age: 27 Year
  Sex: Female

DRUGS (3)
  1. TOPIRAMATE [Concomitant]
  2. PREGABALIN [Suspect]
     Indication: CONVULSION PROPHYLAXIS
  3. LEVETIRACETAM [Suspect]
     Indication: CONVULSION PROPHYLAXIS
     Dosage: 1500 MG; BID;

REACTIONS (3)
  - PRODUCT SUBSTITUTION ISSUE [None]
  - CONVULSION [None]
  - CONDITION AGGRAVATED [None]
